FAERS Safety Report 16771972 (Version 2)
Quarter: 2019Q3

REPORT INFORMATION
  Report Type: Spontaneous
  Country: US (occurrence: US)
  Receive Date: 20190904
  Receipt Date: 20190930
  Transmission Date: 20191005
  Serious: Yes (Other)
  Sender: FDA-Public Use
  Company Number: US-AMERICAN REGENT INC-2019001901

PATIENT
  Sex: Female

DRUGS (2)
  1. INJECTAFER [Suspect]
     Active Substance: FERRIC CARBOXYMALTOSE
     Indication: HAEMOGLOBIN ABNORMAL
     Dosage: 750 MILLIGRAM, SINGLE
     Route: 042
     Dates: start: 20190725, end: 20190725
  2. INJECTAFER [Suspect]
     Active Substance: FERRIC CARBOXYMALTOSE
     Indication: CONSTIPATION

REACTIONS (8)
  - Fatigue [Not Recovered/Not Resolved]
  - Transferrin decreased [Unknown]
  - Dyspnoea [Unknown]
  - Back pain [Unknown]
  - Product use in unapproved indication [Unknown]
  - Iron overload [Recovering/Resolving]
  - Loss of personal independence in daily activities [Recovered/Resolved]
  - Chest pain [Recovered/Resolved]

NARRATIVE: CASE EVENT DATE: 201907
